FAERS Safety Report 8782860 (Version 1)
Quarter: 2012Q4

REPORT INFORMATION
  Report Type: 
  Country: IT (occurrence: IT)
  Receive Date: 20120913
  Receipt Date: 20120913
  Transmission Date: 20130627
  Serious: Yes (Hospitalization)
  Sender: FDA-Public Use
  Company Number: PHHY2012IT079514

PATIENT
  Age: 62 Year
  Sex: Female

DRUGS (3)
  1. NIMESULIDE [Suspect]
     Indication: HEADACHE
     Dosage: 110 mg
     Dates: start: 20120815
  2. ALENDRONATE [Suspect]
     Indication: OSTEOPOROSIS
     Dosage: 70 mg, weekly
     Route: 048
     Dates: start: 20110201, end: 20120815
  3. NEBIVOLOL [Concomitant]

REACTIONS (5)
  - Erosive oesophagitis [Recovered/Resolved with Sequelae]
  - Serum ferritin decreased [Recovered/Resolved with Sequelae]
  - Melaena [Recovered/Resolved with Sequelae]
  - Anaemia [Recovered/Resolved with Sequelae]
  - Gastric ulcer [Recovered/Resolved with Sequelae]
